FAERS Safety Report 5757365-8 (Version None)
Quarter: 2008Q2

REPORT INFORMATION
  Report Type: 
  Country: None (occurrence: None)
  Receive Date: 20080603
  Receipt Date: 20070428
  Transmission Date: 20081010
  Serious: Yes (Death, Hospitalization, Other)
  Sender: FDA-Public Use
  Company Number: US-ASTRAZENECA-2007UW24722

PATIENT
  Age: 500 Month
  Sex: Female
  Weight: 112.3 kg

DRUGS (10)
  1. SEROQUEL [Suspect]
     Indication: BIPOLAR DISORDER
     Dosage: 500 MG TO 700 MG
     Route: 048
     Dates: start: 20041201, end: 20050701
  2. SEROQUEL [Suspect]
     Indication: POST-TRAUMATIC STRESS DISORDER
     Dosage: 500 MG TO 700 MG
     Route: 048
     Dates: start: 20041201, end: 20050701
  3. SEROQUEL [Suspect]
     Route: 048
     Dates: start: 20050801
  4. SEROQUEL [Suspect]
     Route: 048
     Dates: start: 20050801
  5. SEROQUEL [Suspect]
     Dosage: 700 MG TO 800 MG
     Route: 048
     Dates: start: 20050901, end: 20061101
  6. SEROQUEL [Suspect]
     Dosage: 700 MG TO 800 MG
     Route: 048
     Dates: start: 20050901, end: 20061101
  7. RISPERDAL [Concomitant]
     Dates: start: 20050301, end: 20050801
  8. ABILIFY [Concomitant]
     Dosage: 5 MGTO 10 MG
     Dates: start: 20060601
  9. GEODON [Concomitant]
     Dates: start: 20060701
  10. DEPAKOTE [Concomitant]
     Dosage: 1500 MG TO 2000 MG
     Dates: start: 20050801, end: 20060501

REACTIONS (11)
  - BACK INJURY [None]
  - BACK PAIN [None]
  - CUSHING'S SYNDROME [None]
  - DIABETES MELLITUS [None]
  - EAR INFECTION [None]
  - HEADACHE [None]
  - NECK INJURY [None]
  - PAIN [None]
  - ROAD TRAFFIC ACCIDENT [None]
  - SUICIDE ATTEMPT [None]
  - WEIGHT INCREASED [None]
